FAERS Safety Report 15125086 (Version 1)
Quarter: 2018Q3

REPORT INFORMATION
  Report Type: Report from Study
  Country: CZ (occurrence: CZ)
  Receive Date: 20180710
  Receipt Date: 20180710
  Transmission Date: 20181010
  Serious: Yes (Other)
  Sender: FDA-Public Use
  Company Number: CZ-ROCHE-2152478

PATIENT
  Sex: Male

DRUGS (4)
  1. RITUXIMAB. [Suspect]
     Active Substance: RITUXIMAB
     Indication: B-CELL LYMPHOMA
     Route: 065
     Dates: start: 201503, end: 201601
  2. RITUXIMAB. [Suspect]
     Active Substance: RITUXIMAB
     Dosage: R?ESHAP
     Route: 065
     Dates: start: 200202, end: 200203
  3. RITUXIMAB. [Suspect]
     Active Substance: RITUXIMAB
     Dosage: R?DHAP
     Route: 065
     Dates: start: 201605, end: 201607
  4. RITUXIMAB. [Suspect]
     Active Substance: RITUXIMAB
     Dosage: R?CHOP
     Route: 065
     Dates: start: 200107, end: 200110

REACTIONS (3)
  - Atrioventricular dissociation [Unknown]
  - Bundle branch block right [Unknown]
  - Atrial fibrillation [Unknown]
